FAERS Safety Report 5122094-0 (Version None)
Quarter: 2006Q4

REPORT INFORMATION
  Report Type: 
  Country: None (occurrence: None)
  Receive Date: 20061004
  Receipt Date: 20061004
  Transmission Date: 20070319
  Serious: Yes (Life-Threatening, Other)
  Sender: FDA-Public Use
  Company Number: None

PATIENT
  Age: 12 Year
  Sex: Male
  Weight: 35.3806 kg

DRUGS (2)
  1. FABRAZYME [Suspect]
     Indication: FABRY'S DISEASE
     Dosage: 1MG/KILO OF BODY WEIGHT EVERY 14 DAYS IV
     Route: 042
     Dates: start: 20040317, end: 20060901
  2. ANTIPYRETICS [Concomitant]

REACTIONS (10)
  - AURICULAR SWELLING [None]
  - CONVULSION [None]
  - DYSPNOEA [None]
  - EYELID OEDEMA [None]
  - HEART RATE INCREASED [None]
  - HYPERTENSION [None]
  - INFUSION RELATED REACTION [None]
  - SWELLING FACE [None]
  - THERAPY NON-RESPONDER [None]
  - TREMOR [None]
